FAERS Safety Report 16471822 (Version 1)
Quarter: 2019Q2

REPORT INFORMATION
  Report Type: Spontaneous
  Country: IE (occurrence: IE)
  Receive Date: 20190624
  Receipt Date: 20190624
  Transmission Date: 20190711
  Serious: Yes (Other)
  Sender: FDA-Public Use
  Company Number: IE-CELLTRION INC.-2019IE020441

PATIENT

DRUGS (1)
  1. TRUXIMA [Suspect]
     Active Substance: RITUXIMAB-ABBS
     Indication: ARTHRITIS
     Dosage: UNK

REACTIONS (3)
  - Myelodysplastic syndrome [Unknown]
  - Emphysema [Unknown]
  - Pneumonia [Unknown]
